FAERS Safety Report 25149108 (Version 1)
Quarter: 2025Q2

REPORT INFORMATION
  Report Type: Spontaneous
  Country: AT (occurrence: AT)
  Receive Date: 20250402
  Receipt Date: 20250402
  Transmission Date: 20250717
  Serious: Yes (Other)
  Sender: BAUSCH AND LOMB
  Company Number: AT-JNJFOC-20250370472

PATIENT
  Age: 53 Year
  Sex: Male

DRUGS (3)
  1. DEXAMETHASONE [Suspect]
     Active Substance: DEXAMETHASONE
     Indication: Plasma cell myeloma
     Route: 065
  2. DARZALEX [Suspect]
     Active Substance: DARATUMUMAB
     Indication: Plasma cell myeloma
     Route: 065
  3. POMALIDOMIDE [Suspect]
     Active Substance: POMALIDOMIDE
     Indication: Plasma cell myeloma
     Route: 065

REACTIONS (2)
  - Plasma cell myeloma [Unknown]
  - Intentional product use issue [Unknown]
